FAERS Safety Report 6328222-3 (Version None)
Quarter: 2009Q3

REPORT INFORMATION
  Report Type: 
  Country: None (occurrence: None)
  Receive Date: 20090825
  Receipt Date: 20090410
  Transmission Date: 20100115
  Serious: No
  Sender: FDA-Public Use
  Company Number: US-ABBOTT-09P-163-0558986-00

PATIENT
  Sex: Female
  Weight: 55.388 kg

DRUGS (3)
  1. SYNTHROID [Suspect]
     Indication: HYPOTHYROIDISM
     Route: 048
     Dates: start: 20040101, end: 20080101
  2. SYNTHROID [Suspect]
     Dates: start: 20080101
  3. CARDIAC MEDICATION [Concomitant]
     Indication: CARDIAC DISORDER
     Dosage: NOT REPORTED
     Route: 048

REACTIONS (2)
  - MUSCLE SPASMS [None]
  - THYROID FUNCTION TEST ABNORMAL [None]
